FAERS Safety Report 25229392 (Version 1)
Quarter: 2025Q2

REPORT INFORMATION
  Report Type: Spontaneous
  Country: TW (occurrence: TW)
  Receive Date: 20250423
  Receipt Date: 20250423
  Transmission Date: 20250716
  Serious: Yes (Death, Other)
  Sender: DAIICHI
  Company Number: TW-DSJP-DS-2025-137392-TW

PATIENT
  Age: 66 Year
  Sex: Male

DRUGS (1)
  1. TRASTUZUMAB DERUXTECAN [Suspect]
     Active Substance: TRASTUZUMAB DERUXTECAN
     Indication: Bile duct adenocarcinoma
     Route: 065
     Dates: start: 202410, end: 202412

REACTIONS (3)
  - Respiratory failure [Fatal]
  - Sepsis [Unknown]
  - Off label use [Unknown]
